FAERS Safety Report 5797427-2 (Version None)
Quarter: 2008Q3

REPORT INFORMATION
  Report Type: 
  Country: None (occurrence: None)
  Receive Date: 20080701
  Receipt Date: 20080609
  Transmission Date: 20090109
  Serious: No
  Sender: FDA-Public Use
  Company Number: US-BOEHRINGER INGELHEIM GMBH, GERMANY-2008-BP-08961BP

PATIENT
  Sex: Male

DRUGS (6)
  1. SPIRIVA [Suspect]
     Indication: EMPHYSEMA
     Route: 055
     Dates: start: 20080101
  2. OXYGEN [Concomitant]
  3. FLORADIL [Concomitant]
  4. ZYRTEC [Concomitant]
  5. MUCCINEX [Concomitant]
  6. LISINOPRIL [Concomitant]

REACTIONS (4)
  - ASTHENIA [None]
  - COUGH [None]
  - DYSPNOEA [None]
  - RHINORRHOEA [None]
